FAERS Safety Report 9736185 (Version 1)
Quarter: 2013Q4

REPORT INFORMATION
  Report Type: Spontaneous
  Country: IN (occurrence: IN)
  Receive Date: 20131206
  Receipt Date: 20131206
  Transmission Date: 20140711
  Serious: Yes (Other)
  Sender: FDA-Public Use
  Company Number: IN-009507513-1312IND002271

PATIENT
  Age: 63 Year
  Sex: 0

DRUGS (3)
  1. JANUMET [Suspect]
     Dosage: 50/500, BID
     Route: 048
  2. INSULIN [Concomitant]
  3. GLUCOLYTE (METFORMIN HYDROCHLORIDE) [Concomitant]
     Dosage: 2 MG, UNK

REACTIONS (3)
  - Myocardial infarction [Recovered/Resolved]
  - Haemorrhoids [Recovered/Resolved]
  - Dyspnoea [Recovered/Resolved]
